FAERS Safety Report 6572230-4 (Version None)
Quarter: 2010Q1

REPORT INFORMATION
  Report Type: 
  Country: None (occurrence: None)
  Receive Date: 20100205
  Receipt Date: 20100127
  Transmission Date: 20100710
  Serious: Yes (Hospitalization, Other)
  Sender: FDA-Public Use
  Company Number: PHHY2009JP23018

PATIENT
  Age: 65 Year
  Sex: Male

DRUGS (3)
  1. NEORAL [Suspect]
     Indication: PSORIASIS
     Dosage: UNK
     Route: 048
     Dates: start: 20081201, end: 20090201
  2. NEORAL [Suspect]
     Dosage: 50 MG, QD
     Route: 048
     Dates: start: 20090201, end: 20090608
  3. NEORAL [Suspect]
     Dosage: TWICE DAILY

REACTIONS (4)
  - DEHYDRATION [None]
  - HEPATIC ENCEPHALOPATHY [None]
  - IMMUNOSUPPRESSANT DRUG LEVEL INCREASED [None]
  - RENAL IMPAIRMENT [None]
